FAERS Safety Report 7446582-7 (Version None)
Quarter: 2011Q2

REPORT INFORMATION
  Report Type: 
  Country: None (occurrence: None)
  Receive Date: 20110429
  Receipt Date: 20110419
  Transmission Date: 20111010
  Serious: Yes (Hospitalization, Other)
  Sender: FDA-Public Use
  Company Number: US-MERCK-1010USA01924

PATIENT
  Age: 64 Year
  Sex: Female
  Weight: 117 kg

DRUGS (6)
  1. FOSAMAX [Suspect]
     Indication: OSTEOPOROSIS
     Route: 048
     Dates: end: 20080107
  2. FOSAMAX [Suspect]
     Route: 048
  3. FOSAMAX [Suspect]
     Route: 048
     Dates: start: 19980301
  4. FOSAMAX [Suspect]
     Indication: OSTEOPENIA
     Route: 048
     Dates: end: 20080107
  5. FOSAMAX [Suspect]
     Route: 048
  6. FOSAMAX [Suspect]
     Route: 048
     Dates: start: 19980301

REACTIONS (46)
  - FATIGUE [None]
  - PLANTAR FASCIITIS [None]
  - PAIN IN EXTREMITY [None]
  - EAR PRURITUS [None]
  - JOINT INJURY [None]
  - LIMB INJURY [None]
  - ALLERGY TO ARTHROPOD STING [None]
  - ARTHRITIS [None]
  - ORAL INFECTION [None]
  - FALL [None]
  - ADVERSE DRUG REACTION [None]
  - BRONCHITIS [None]
  - COLONIC POLYP [None]
  - HAEMORRHOIDS [None]
  - TOOTH DISORDER [None]
  - POLYARTHRITIS [None]
  - DIVERTICULITIS [None]
  - ANXIETY [None]
  - LOOSE TOOTH [None]
  - HYPERTENSION [None]
  - HYPERCHOLESTEROLAEMIA [None]
  - WEIGHT DECREASED [None]
  - OSTEONECROSIS OF JAW [None]
  - COMPRESSION FRACTURE [None]
  - IMPAIRED HEALING [None]
  - BURSITIS [None]
  - NIGHT SWEATS [None]
  - TENDONITIS [None]
  - GINGIVAL INFECTION [None]
  - STOMATITIS [None]
  - EMPYEMA DRAINAGE [None]
  - ARTHROPATHY [None]
  - CHRONIC OBSTRUCTIVE PULMONARY DISEASE [None]
  - FISTULA DISCHARGE [None]
  - ACROCHORDON [None]
  - SINUS DISORDER [None]
  - OSTEOARTHRITIS [None]
  - CYST [None]
  - DENTAL CARIES [None]
  - DEPRESSION [None]
  - DIZZINESS [None]
  - ANKLE FRACTURE [None]
  - INFLUENZA [None]
  - RECTAL HAEMORRHAGE [None]
  - ORAL CAVITY FISTULA [None]
  - NAUSEA [None]
